FAERS Safety Report 11431566 (Version 2)
Quarter: 2016Q2

REPORT INFORMATION
  Report Type: Spontaneous
  Country: US (occurrence: US)
  Receive Date: 20150828
  Receipt Date: 20160607
  Transmission Date: 20160815
  Serious: Yes (Hospitalization, Other)
  Sender: FDA-Public Use
  Company Number: US-TEVA-589389USA

PATIENT
  Age: 21 Year
  Sex: Male

DRUGS (8)
  1. HALOPERIDOL. [Suspect]
     Active Substance: HALOPERIDOL
     Indication: DELIRIUM
     Dosage: ONE DOSE OF 5 MG
     Route: 042
  2. LORAZEPAM. [Suspect]
     Active Substance: LORAZEPAM
     Indication: DELIRIUM
     Dosage: 1 MG AND THEN, SECOND DOSE OF 1 MG ON ICU DAY 5
     Route: 065
  3. PIPERACILLIN, TAZOBACTAM [Suspect]
     Active Substance: PIPERACILLIN SODIUM\TAZOBACTAM SODIUM
     Indication: OESOPHAGEAL RUPTURE
     Route: 065
  4. OXYMORPHONE HYDROCHLORIDE. [Suspect]
     Active Substance: OXYMORPHONE HYDROCHLORIDE
     Indication: DRUG ABUSE
     Dosage: 10 MG DAILY
     Route: 045
  5. LORAZEPAM. [Suspect]
     Active Substance: LORAZEPAM
     Indication: ANXIETY
  6. OXYCODONE [Suspect]
     Active Substance: OXYCODONE
     Indication: DRUG ABUSE
     Dosage: OCCASIONALLY AND THEN, PROGRESSED TO DAILY 60 MG
     Route: 045
  7. OXYCODONE [Suspect]
     Active Substance: OXYCODONE
     Indication: DRUG ABUSE
     Dosage: OCCASIONALLY AND THE, PROGRESSED TO DAILY 60 MG
     Route: 048
  8. OXYMORPHONE HYDROCHLORIDE. [Suspect]
     Active Substance: OXYMORPHONE HYDROCHLORIDE
     Indication: DRUG ABUSE
     Dosage: 10 MG DAILY
     Route: 048

REACTIONS (18)
  - Speech disorder [Recovered/Resolved]
  - Rhabdomyolysis [Recovered/Resolved]
  - Drug withdrawal syndrome [Recovered/Resolved]
  - Acute kidney injury [Recovered/Resolved]
  - Hallucination, tactile [Recovered/Resolved]
  - Hallucinations, mixed [Recovered/Resolved]
  - Somnolence [Recovered/Resolved]
  - Feeling hot [Recovered/Resolved]
  - Restlessness [Recovered/Resolved]
  - Confusional state [Recovered/Resolved]
  - Drug abuse [Recovered/Resolved]
  - Disorientation [Recovered/Resolved]
  - Drug dependence [Recovered/Resolved]
  - Agitation [Recovered/Resolved]
  - Dyskinesia [Recovered/Resolved]
  - Akathisia [Recovered/Resolved]
  - Flushing [Recovered/Resolved]
  - Delirium [Recovered/Resolved]
